FAERS Safety Report 5897744-1 (Version None)
Quarter: 2008Q3

REPORT INFORMATION
  Report Type: 
  Country: None (occurrence: None)
  Receive Date: 20080925
  Receipt Date: 20080916
  Transmission Date: 20090109
  Serious: Yes (Hospitalization)
  Sender: FDA-Public Use
  Company Number: PHHO2008US11265

PATIENT
  Sex: Female
  Weight: 52 kg

DRUGS (5)
  1. ZOMETA [Suspect]
     Dosage: UNK
     Dates: start: 20080425
  2. SUNITINIB MALATE [Concomitant]
     Indication: BREAST CANCER
     Dosage: UNK MG, UNK
     Route: 048
     Dates: start: 20080719
  3. DOCETAXEL [Concomitant]
     Indication: BREAST CANCER
     Dosage: 90 MG, TIW
     Dates: start: 20080718
  4. MAGNESIUM SULFATE [Concomitant]
     Dosage: UNK
     Dates: start: 20080708
  5. IBUPROFEN [Concomitant]
     Dosage: UNK
     Dates: start: 20080708

REACTIONS (1)
  - ABSCESS JAW [None]
